FAERS Safety Report 20357463 (Version 1)
Quarter: 2022Q1

REPORT INFORMATION
  Report Type: Spontaneous
  Country: US (occurrence: US)
  Receive Date: 20220120
  Receipt Date: 20220120
  Transmission Date: 20220423
  Serious: No
  Sender: FDA-Public Use
  Company Number: US-PERRIGO-21US032201

PATIENT
  Age: 76 Year
  Sex: Female

DRUGS (2)
  1. TRETINOIN [Suspect]
     Active Substance: TRETINOIN
     Indication: Product used for unknown indication
     Dosage: UNKNOWN, SINGLE
     Route: 061
     Dates: start: 20211207, end: 20211207
  2. TRETINOIN [Suspect]
     Active Substance: TRETINOIN
     Dosage: UNKNOWN, SINGLE
     Route: 047
     Dates: start: 20211208, end: 20211208

REACTIONS (2)
  - Dry eye [Not Recovered/Not Resolved]
  - Accidental exposure to product [Recovered/Resolved]

NARRATIVE: CASE EVENT DATE: 20211208
